FAERS Safety Report 6942802 (Version 3)
Quarter: 2013Q1

REPORT INFORMATION
  Report Type: Spontaneous
  Country: GB (occurrence: GB)
  Receive Date: 20090317
  Receipt Date: 20130301
  Transmission Date: 20140127
  Serious: Yes (Other)
  Sender: FDA-Public Use
  Company Number: PHHY2009GB03011

PATIENT
  Age: 25 None
  Sex: Male

DRUGS (3)
  1. CLOZARIL [Suspect]
     Indication: SCHIZOPHRENIA
     Route: 048
     Dates: start: 20090120
  2. RISPERIDONE [Concomitant]
     Indication: SCHIZOPHRENIA
     Dosage: 37.5 MG, UNK
     Route: 030
     Dates: start: 200809, end: 20090102
  3. BECLOMETHASONE [Concomitant]

REACTIONS (6)
  - Dental caries [Unknown]
  - Infection [Unknown]
  - Tachycardia [Not Recovered/Not Resolved]
  - Pain [Unknown]
  - Neutrophil count increased [Unknown]
  - White blood cell count increased [Unknown]
